FAERS Safety Report 4433152-8 (Version None)
Quarter: 2004Q3

REPORT INFORMATION
  Report Type: 
  Country: None (occurrence: None)
  Receive Date: 20040823
  Receipt Date: 20040805
  Transmission Date: 20050211
  Serious: Yes (Hospitalization)
  Sender: FDA-Public Use
  Company Number: 197944

PATIENT
  Age: 40 Year
  Sex: Female
  Weight: 90.7194 kg

DRUGS (9)
  1. AVONEX [Suspect]
     Indication: MULTIPLE SCLEROSIS
     Dosage: 30 MCG QW IM
     Route: 030
     Dates: start: 20040401
  2. PREMARIN [Concomitant]
  3. PROPOXYPHENE HCL AND ACETAMINOPHEN [Concomitant]
  4. METHOCARBAMOL [Concomitant]
  5. BISOPROLOL FUMARATE AND HYDROCHLOROTHIAZIDE [Concomitant]
  6. SYNTHROID [Concomitant]
  7. PREVACID [Concomitant]
  8. ZOCOR [Concomitant]
  9. ULTRACET [Concomitant]

REACTIONS (9)
  - DYSSTASIA [None]
  - ECONOMIC PROBLEM [None]
  - JOINT SWELLING [None]
  - JOINT WARMTH [None]
  - OEDEMA PERIPHERAL [None]
  - OSTEOMYELITIS [None]
  - POSTOPERATIVE INFECTION [None]
  - STRESS SYMPTOMS [None]
  - SURGERY [None]
